FAERS Safety Report 20764978 (Version 2)
Quarter: 2022Q2

REPORT INFORMATION
  Report Type: Spontaneous
  Country: US (occurrence: US)
  Receive Date: 20220428
  Receipt Date: 20220428
  Transmission Date: 20220720
  Serious: No
  Sender: FDA-Public Use
  Company Number: US-SA-SAC20220420001275

PATIENT
  Sex: Male

DRUGS (1)
  1. DUPIXENT [Suspect]
     Active Substance: DUPILUMAB
     Indication: Dermatitis atopic
     Dosage: 300 MG, QOW
     Route: 058

REACTIONS (8)
  - Eye inflammation [Unknown]
  - Eczema [Unknown]
  - Dermatitis atopic [Unknown]
  - Rash [Unknown]
  - Hypersensitivity [Unknown]
  - Product dose omission issue [Unknown]
  - Product use issue [Unknown]
  - Drug ineffective [Unknown]
